FAERS Safety Report 5360898-X (Version None)
Quarter: 2007Q2

REPORT INFORMATION
  Report Type: 
  Country: None (occurrence: None)
  Receive Date: 20070618
  Receipt Date: 20070611
  Transmission Date: 20071010
  Serious: Yes (Other)
  Sender: FDA-Public Use
  Company Number: AU-PFIZER INC-2007048044

PATIENT

DRUGS (4)
  1. SERTRALINE [Suspect]
  2. CLOZAPINE [Interacting]
  3. RANITIDINE [Interacting]
  4. PARACETAMOL [Suspect]

REACTIONS (2)
  - DRUG INTERACTION [None]
  - MYOCARDITIS [None]
